FAERS Safety Report 7728321 (Version 6)
Quarter: 2012Q4

REPORT INFORMATION
  Report Type: 
  Country: FR (occurrence: FR)
  Receive Date: 20101222
  Receipt Date: 20120830
  Transmission Date: 20130627
  Serious: Yes (Other)
  Sender: FDA-Public Use
  Company Number: FR-ACTELION-A-CH2010-40291

PATIENT
  Age: 7 Year
  Sex: Male
  Weight: 25 kg

DRUGS (7)
  1. ZAVESCA [Suspect]
     Indication: NIEMANN-PICK DISEASE
     Dosage: 300 mg, qd
     Route: 048
     Dates: end: 201004
  2. ZAVESCA [Suspect]
     Dosage: 100 mg, qd
     Route: 048
     Dates: start: 201002
  3. ZAVESCA [Suspect]
     Dosage: 200 mg, qd
     Route: 048
  4. ZAVESCA [Suspect]
     Dosage: 100 mg, qd
     Route: 048
     Dates: start: 20100811
  5. ZAVESCA [Suspect]
     Dosage: 200 mg, qd
     Route: 048
  6. ZAVESCA [Suspect]
     Dosage: 300 mg, qd
     Route: 048
  7. ANAFRANIL [Concomitant]

REACTIONS (9)
  - General physical health deterioration [Recovered/Resolved]
  - Weight decreased [Recovering/Resolving]
  - Decreased appetite [Recovered/Resolved]
  - Asthenia [Recovered/Resolved]
  - Gastrointestinal disorder [Unknown]
  - Abdominal pain [Unknown]
  - Diarrhoea [Recovered/Resolved]
  - Epistaxis [Recovered/Resolved]
  - Factor X deficiency [Recovered/Resolved]
